FAERS Safety Report 13828043 (Version 3)
Quarter: 2017Q3

REPORT INFORMATION
  Report Type: Spontaneous
  Country: JP (occurrence: JP)
  Receive Date: 20170803
  Receipt Date: 20170808
  Transmission Date: 20171127
  Serious: Yes (Hospitalization)
  Sender: FDA-Public Use
  Company Number: JP-ROCHE-1972660

PATIENT
  Age: 73 Year
  Sex: Female

DRUGS (1)
  1. CEFTRIAXONE SODIUM. [Suspect]
     Active Substance: CEFTRIAXONE SODIUM
     Indication: INFECTION
     Route: 042

REACTIONS (3)
  - Dyskinesia [Recovering/Resolving]
  - Altered state of consciousness [Recovering/Resolving]
  - Toxic encephalopathy [Recovering/Resolving]
